FAERS Safety Report 13925987 (Version 1)
Quarter: 2017Q3

REPORT INFORMATION
  Report Type: Spontaneous
  Country: US (occurrence: US)
  Receive Date: 20170831
  Receipt Date: 20170831
  Transmission Date: 20171127
  Serious: No
  Sender: FDA-Public Use
  Company Number: US-SUNOVION-2016SUN003558

PATIENT
  Sex: Female

DRUGS (4)
  1. LATUDA [Suspect]
     Active Substance: LURASIDONE HYDROCHLORIDE
     Dosage: UNK
     Route: 048
     Dates: start: 20161118
  2. LITHIUM. [Suspect]
     Active Substance: LITHIUM
     Dosage: 900 MG, UNK
  3. LATUDA [Suspect]
     Active Substance: LURASIDONE HYDROCHLORIDE
     Indication: BIPOLAR I DISORDER
     Dosage: UNK
     Route: 048
     Dates: end: 20161118
  4. LITHIUM. [Suspect]
     Active Substance: LITHIUM
     Dosage: 1200 MG, UNK

REACTIONS (15)
  - Panic reaction [Unknown]
  - Anxiety [Unknown]
  - Mental disorder [Recovering/Resolving]
  - Feeling of despair [Unknown]
  - Depressed mood [Unknown]
  - Crying [Unknown]
  - Antipsychotic drug level below therapeutic [Unknown]
  - Intentional self-injury [Unknown]
  - Bipolar I disorder [Unknown]
  - Autophobia [Unknown]
  - Pain [Unknown]
  - Emotional poverty [Unknown]
  - Glycosylated haemoglobin increased [Unknown]
  - Drug effect incomplete [Unknown]
  - Feeling guilty [Unknown]
